FAERS Safety Report 4316165-6 (Version None)
Quarter: 2004Q1

REPORT INFORMATION
  Report Type: 
  Country: None (occurrence: None)
  Receive Date: 20040312
  Receipt Date: 20040305
  Transmission Date: 20041129
  Serious: Yes (Other)
  Sender: FDA-Public Use
  Company Number: PHNR2004AU00740

PATIENT
  Age: 75 Year
  Sex: Female

DRUGS (7)
  1. SANDOSTATIN [Suspect]
     Dosage: 400 UG, QD
     Dates: start: 20030522, end: 20030526
  2. CEFEPIME HYDROCHLORIDE [Suspect]
     Indication: SEPSIS
     Dosage: 2 G, QD
     Dates: start: 20030320, end: 20030322
  3. CARTIA [Concomitant]
  4. LIPEX [Concomitant]
  5. POLY-TEARS [Concomitant]
  6. CARDIZEM [Concomitant]
  7. RANITIDINE [Concomitant]

REACTIONS (3)
  - ERYTHEMA [None]
  - SWOLLEN TONGUE [None]
  - TONGUE DRY [None]
